FAERS Safety Report 5814600-5 (Version None)
Quarter: 2008Q3

REPORT INFORMATION
  Report Type: 
  Country: None (occurrence: None)
  Receive Date: 20080718
  Receipt Date: 20071022
  Transmission Date: 20090109
  Serious: No
  Sender: FDA-Public Use
  Company Number: US-KINGPHARMUSA00001-K200701372

PATIENT

DRUGS (1)
  1. LEVOXYL [Suspect]
     Dosage: UNK, UNK

REACTIONS (1)
  - IDIOSYNCRATIC DRUG REACTION [None]
